FAERS Safety Report 15936280 (Version 1)
Quarter: 2019Q1

REPORT INFORMATION
  Report Type: Spontaneous
  Country: GB (occurrence: GB)
  Receive Date: 20190208
  Receipt Date: 20190208
  Transmission Date: 20190417
  Serious: Yes (Hospitalization, Disabling)
  Sender: FDA-Public Use
  Company Number: GB-ACCORD-104837

PATIENT
  Age: 22 Year
  Sex: Female
  Weight: 48 kg

DRUGS (13)
  1. CITALOPRAM [Concomitant]
     Active Substance: CITALOPRAM HYDROBROMIDE
     Dates: start: 20170915, end: 20180501
  2. NAPROXEN. [Concomitant]
     Active Substance: NAPROXEN
     Dates: start: 20180102, end: 20180202
  3. LAXIDO [Concomitant]
     Active Substance: POLYETHYLENE GLYCOL 3350\POTASSIUM CHLORIDE\SODIUM BICARBONATE\SODIUM CHLORIDE
     Dosage: USE AS DIRECTED
     Dates: start: 20180415, end: 20180425
  4. DIHYDROCODEINE [Concomitant]
     Active Substance: DIHYDROCODEINE
     Dosage: THREE TIMES DAILY
     Dates: start: 20180102
  5. TRAMADOL. [Concomitant]
     Active Substance: TRAMADOL
     Dosage: TAKE 1 OR 2 EVERY 4-6 HOURS.
  6. PROPRANOLOL [Concomitant]
     Active Substance: PROPRANOLOL HYDROCHLORIDE
     Dates: start: 20170323
  7. HYOSCINE [Concomitant]
     Active Substance: SCOPOLAMINE
     Dates: start: 20180415, end: 20180422
  8. CALCEOS [Concomitant]
     Active Substance: CALCIUM CARBONATE\CHOLECALCIFEROL
     Dates: start: 20180111
  9. FLUCONAZOLE. [Concomitant]
     Active Substance: FLUCONAZOLE
     Dosage: USE AS DIRECTED
     Dates: start: 20180206, end: 20180220
  10. AMITRIPTYLINE [Suspect]
     Active Substance: AMITRIPTYLINE
     Indication: PRODUCT USED FOR UNKNOWN INDICATION
  11. DULOXETINE. [Concomitant]
     Active Substance: DULOXETINE
     Dates: start: 20180501
  12. IRON [Concomitant]
     Active Substance: IRON
     Dates: start: 20180111
  13. HYOSCINE [Concomitant]
     Active Substance: SCOPOLAMINE
     Dosage: UP TO FOUR TIMES DAILY
     Dates: start: 20180424

REACTIONS (4)
  - Nausea [Unknown]
  - Vomiting [Recovered/Resolved]
  - Chills [Recovered/Resolved]
  - Bedridden [Recovered/Resolved]

NARRATIVE: CASE EVENT DATE: 20180501
